FAERS Safety Report 15320844 (Version 1)
Quarter: 2018Q3

REPORT INFORMATION
  Report Type: Spontaneous
  Country: US (occurrence: US)
  Receive Date: 20180821
  Receipt Date: 20180821
  Transmission Date: 20181010
  Serious: Yes (Hospitalization)
  Sender: FDA-Public Use
  Company Number: None

PATIENT
  Age: 87 Year
  Sex: Female
  Weight: 54 kg

DRUGS (11)
  1. APIXABAN 2.5MG [Concomitant]
  2. ASCORBIC ACID 100 MG [Concomitant]
  3. CYANOCOBALAMIN 100 MCG [Concomitant]
  4. ALLOPURINOL 100 MG [Concomitant]
     Active Substance: ALLOPURINOL
  5. CHOLECALCIFEROL 1000 UNITS [Concomitant]
  6. LEVOTHYROXINE 75 MCG [Concomitant]
  7. MULTIVITAMIN [Concomitant]
     Active Substance: VITAMINS
  8. HYDRALAZINE [Suspect]
     Active Substance: HYDRALAZINE HYDROCHLORIDE
     Indication: HYPERTENSION
     Route: 048
  9. ACETAMINOPHEN 650 MG CR [Concomitant]
  10. LOVASTATIN  40 MG [Concomitant]
     Active Substance: LOVASTATIN
  11. CALCIUM CARBONATE 1250 MG [Concomitant]

REACTIONS (3)
  - Anti-neutrophil cytoplasmic antibody positive vasculitis [None]
  - Haematuria [None]
  - Glomerulonephritis [None]

NARRATIVE: CASE EVENT DATE: 20180803
